FAERS Safety Report 14941407 (Version 3)
Quarter: 2020Q4

REPORT INFORMATION
  Report Type: Spontaneous
  Country: US (occurrence: US)
  Receive Date: 20180526
  Receipt Date: 20201030
  Transmission Date: 20210113
  Serious: No
  Sender: FDA-Public Use
  Company Number: US-TEVA-2018-US-896635

PATIENT
  Sex: Female

DRUGS (2)
  1. PREDNISONE. [Concomitant]
     Active Substance: PREDNISONE
     Dosage: LOW DOSE OF PREDNISONE
  2. FENTORA [Suspect]
     Active Substance: FENTANYL CITRATE
     Indication: PRODUCT USED FOR UNKNOWN INDICATION
     Route: 065
     Dates: start: 2002

REACTIONS (10)
  - Walking aid user [Unknown]
  - Pain [Not Recovered/Not Resolved]
  - Illness [Not Recovered/Not Resolved]
  - Hypertension [Unknown]
  - Asthma [Unknown]
  - Inability to afford medication [Unknown]
  - Visual impairment [Not Recovered/Not Resolved]
  - Crying [Unknown]
  - Emotional distress [Unknown]
  - Insurance issue [Unknown]
